FAERS Safety Report 11152760 (Version 2)
Quarter: 2015Q2

REPORT INFORMATION
  Report Type: Spontaneous
  Country: FR (occurrence: FR)
  Receive Date: 20150601
  Receipt Date: 20150602
  Transmission Date: 20150821
  Serious: Yes (Hospitalization)
  Sender: FDA-Public Use
  Company Number: PHHY2015FR063668

PATIENT
  Age: 34 Year
  Sex: Female

DRUGS (9)
  1. LIDOCAINE. [Suspect]
     Active Substance: LIDOCAINE
     Indication: ANAESTHESIA
     Dosage: 15 ML OF LIDOCAINE 20MG/ML WITH ADRENALIN
     Route: 065
  2. PARACETAMOL [Suspect]
     Active Substance: ACETAMINOPHEN
     Indication: ANALGESIC THERAPY
     Dosage: 1 G, QID
     Route: 048
  3. MORPHINE [Suspect]
     Active Substance: MORPHINE
     Indication: ANALGESIC THERAPY
     Dosage: 2 MG, QID
     Route: 008
  4. ADRENALIN [Suspect]
     Active Substance: EPINEPHRINE
     Indication: ANAESTHESIA
     Dosage: 15 ML OF LIDOCAINE 20MG/ML WITH ADRENALIN
     Route: 065
  5. ROPIVACAINE [Suspect]
     Active Substance: ROPIVACAINE
     Indication: ANAESTHESIA
     Dosage: 20 ML OF A SOLUTION OF 1 MG/ML ROPIVACAINE AND 0.25 ?G/ML SUFENTANIL
     Route: 008
  6. SUFENTANIL [Suspect]
     Active Substance: SUFENTANIL
     Indication: ANAESTHESIA
     Dosage: 20 ML OF A SOLUTION OF 1 MG/ML ROPIVACAINE AND 0.25 ?G/ML SUFENTANIL
     Route: 008
  7. KETOPROFEN. [Suspect]
     Active Substance: KETOPROFEN
     Indication: ANALGESIC THERAPY
     Dosage: 50 MG, QID
     Route: 065
  8. NEFOPAM [Suspect]
     Active Substance: NEFOPAM
     Indication: ANALGESIC THERAPY
     Dosage: 40 MG, QID
     Route: 065
  9. ENOXAPARIN [Concomitant]
     Active Substance: ENOXAPARIN
     Indication: PROPHYLAXIS
     Dosage: 40 MG/24 HOUR
     Route: 058

REACTIONS (3)
  - Spinal epidural haemorrhage [Recovered/Resolved]
  - Paraesthesia [Recovered/Resolved]
  - Gait disturbance [Recovered/Resolved]
